FAERS Safety Report 7034866-6 (Version None)
Quarter: 2010Q4

REPORT INFORMATION
  Report Type: 
  Country: None (occurrence: None)
  Receive Date: 20101008
  Receipt Date: 20100930
  Transmission Date: 20110411
  Serious: Yes (Other)
  Sender: FDA-Public Use
  Company Number: BR-US-EMD SERONO, INC.-7019700

PATIENT
  Sex: Female

DRUGS (7)
  1. REBIF [Suspect]
     Indication: RELAPSING-REMITTING MULTIPLE SCLEROSIS
     Route: 058
     Dates: start: 20080811
  2. PREDNISONE [Concomitant]
  3. ENALAPRIL MALEATE [Concomitant]
  4. ATENOLOL [Concomitant]
  5. SINVASTATINE (SIMVASTATINE) [Concomitant]
  6. CLORANA [Concomitant]
  7. OMEPRAZOLE [Concomitant]

REACTIONS (9)
  - CREATININE URINE INCREASED [None]
  - HEADACHE [None]
  - HYPOAESTHESIA [None]
  - INJECTION SITE ERYTHEMA [None]
  - KIDNEY FIBROSIS [None]
  - KIDNEY TRANSPLANT REJECTION [None]
  - PROTEIN URINE PRESENT [None]
  - RENAL ARTERY HYPERPLASIA [None]
  - RENAL TUBULAR ATROPHY [None]
